FAERS Safety Report 7230262-7 (Version None)
Quarter: 2011Q1

REPORT INFORMATION
  Report Type: 
  Country: None (occurrence: None)
  Receive Date: 20110118
  Receipt Date: 20110113
  Transmission Date: 20110831
  Serious: Yes (Other)
  Sender: FDA-Public Use
  Company Number: US-PFIZER INC-2011009237

PATIENT
  Sex: Female
  Weight: 49.887 kg

DRUGS (1)
  1. CHANTIX [Suspect]
     Indication: SMOKING CESSATION THERAPY
     Dosage: 1 MG, 2X/DAY
     Route: 048
     Dates: start: 20101129, end: 20110101

REACTIONS (9)
  - DIZZINESS [None]
  - RASH [None]
  - CRYING [None]
  - HEADACHE [None]
  - IRRITABILITY [None]
  - DEPRESSION [None]
  - MOOD ALTERED [None]
  - NAUSEA [None]
  - VOMITING [None]
